FAERS Safety Report 4448604-4 (Version None)
Quarter: 2004Q3

REPORT INFORMATION
  Report Type: 
  Country: None (occurrence: None)
  Receive Date: 20040909
  Receipt Date: 20040823
  Transmission Date: 20050211
  Serious: No
  Sender: FDA-Public Use
  Company Number: 238800

PATIENT
  Age: 12 Year
  Sex: Male
  Weight: 35 kg

DRUGS (1)
  1. NORDITROPIN [Suspect]
     Indication: BODY HEIGHT BELOW NORMAL
     Dates: start: 20000815

REACTIONS (2)
  - CHOLESTEATOMA [None]
  - HYPOACUSIS [None]
